FAERS Safety Report 8916184 (Version 6)
Quarter: 2013Q1

REPORT INFORMATION
  Report Type: Spontaneous
  Country: US (occurrence: US)
  Receive Date: 20121120
  Receipt Date: 20130321
  Transmission Date: 20140127
  Serious: Yes (Death, Hospitalization)
  Sender: FDA-Public Use
  Company Number: US-GLAXOSMITHKLINE-A1002490A

PATIENT
  Age: 66 Year
  Sex: Female

DRUGS (4)
  1. FLOLAN [Suspect]
     Indication: PRODUCT USED FOR UNKNOWN INDICATION
     Dosage: 28NGKM CONTINUOUS
     Route: 042
     Dates: start: 20120127
  2. LASIX [Concomitant]
  3. COUMADIN [Concomitant]
  4. REVATIO [Concomitant]

REACTIONS (5)
  - Right ventricular failure [Unknown]
  - Malnutrition [Unknown]
  - Blood pressure abnormal [Unknown]
  - Fluid retention [Unknown]
  - Cardiogenic shock [Fatal]
